FAERS Safety Report 20694445 (Version 1)
Quarter: 2022Q2

REPORT INFORMATION
  Report Type: Spontaneous
  Country: US (occurrence: US)
  Receive Date: 20220411
  Receipt Date: 20220411
  Transmission Date: 20220721
  Serious: Yes (Hospitalization, Other)
  Sender: FDA-Public Use
  Company Number: US-ALEMBIC PHARMACUETICALS LIMITED-2022SCAL000130

PATIENT
  Age: 57 Year
  Sex: Female

DRUGS (3)
  1. CLONAZEPAM [Suspect]
     Active Substance: CLONAZEPAM
     Indication: Product used for unknown indication
     Dosage: FOR 11 YEARS
     Route: 065
  2. METOPROLOL [Concomitant]
     Active Substance: METOPROLOL
     Indication: Product used for unknown indication
     Dosage: UNK
     Route: 065
  3. VALSARTAN [Concomitant]
     Active Substance: VALSARTAN
     Indication: Product used for unknown indication
     Dosage: UNK
     Route: 065

REACTIONS (7)
  - Stress cardiomyopathy [Recovered/Resolved]
  - Electrocardiogram ST segment elevation [Recovering/Resolving]
  - Ventricular hypokinesia [Recovered/Resolved]
  - Chest pain [Recovered/Resolved]
  - Troponin T increased [Recovered/Resolved]
  - Ejection fraction decreased [Recovered/Resolved]
  - Drug withdrawal syndrome [Recovered/Resolved]
